FAERS Safety Report 4758203-2 (Version None)
Quarter: 2005Q3

REPORT INFORMATION
  Report Type: 
  Country: None (occurrence: None)
  Receive Date: 20050831
  Receipt Date: 20050603
  Transmission Date: 20060218
  Serious: Yes (Life-Threatening, Hospitalization, Disabling)
  Sender: FDA-Public Use
  Company Number: US-MERCK-0506USA00934

PATIENT
  Age: 64 Year
  Sex: Female

DRUGS (8)
  1. VIOXX [Suspect]
     Indication: ARTHRITIS
     Route: 048
     Dates: start: 20000101, end: 20050418
  2. VIOXX [Suspect]
     Route: 048
     Dates: start: 20010121, end: 20050418
  3. LIPITOR [Concomitant]
     Route: 065
     Dates: start: 20000101
  4. INSULIN [Concomitant]
     Route: 065
     Dates: start: 19630101
  5. INSULIN [Concomitant]
     Route: 065
     Dates: start: 19630101
  6. PRILOSEC [Concomitant]
     Route: 065
  7. SYNTHROID [Concomitant]
     Route: 065
  8. PREMARIN [Concomitant]
     Route: 065

REACTIONS (1)
  - MYOCARDIAL INFARCTION [None]
